FAERS Safety Report 24466912 (Version 1)
Quarter: 2024Q4

REPORT INFORMATION
  Report Type: Report from Study
  Country: US (occurrence: US)
  Receive Date: 20241018
  Receipt Date: 20241018
  Transmission Date: 20250115
  Serious: No
  Sender: ROCHE
  Company Number: US-ROCHE-3551693

PATIENT
  Age: 25 Year
  Sex: Male
  Weight: 93.4 kg

DRUGS (8)
  1. XOLAIR [Suspect]
     Active Substance: OMALIZUMAB
     Indication: Asthma
     Route: 058
     Dates: start: 20230427
  2. XOLAIR [Suspect]
     Active Substance: OMALIZUMAB
  3. METHYLPREDNISOLONE [Concomitant]
     Active Substance: METHYLPREDNISOLONE
  4. FLUTICASONE PROPIONATE [Concomitant]
     Active Substance: FLUTICASONE PROPIONATE
     Dosage: 50 MCG
     Route: 045
  5. MONTELUKAST [Concomitant]
     Active Substance: MONTELUKAST
     Route: 048
     Dates: start: 20211109
  6. ALBUTEROL SULFATE [Concomitant]
     Active Substance: ALBUTEROL SULFATE
  7. MOBIC [Concomitant]
     Active Substance: MELOXICAM
     Route: 048
     Dates: start: 20200610
  8. PREDNISONE [Concomitant]
     Active Substance: PREDNISONE
     Route: 048
     Dates: start: 20220308, end: 20220315

REACTIONS (2)
  - Off label use [Unknown]
  - No adverse event [Unknown]
